FAERS Safety Report 5754127-2 (Version None)
Quarter: 2008Q2

REPORT INFORMATION
  Report Type: 
  Country: None (occurrence: None)
  Receive Date: 20080527
  Receipt Date: 20080507
  Transmission Date: 20081010
  Serious: Yes (Other)
  Sender: FDA-Public Use
  Company Number: 2008S1008071

PATIENT
  Age: 43 Year
  Sex: Female

DRUGS (9)
  1. ENDEP [Suspect]
     Indication: NEURALGIA
     Dosage: 150 MG; AT BEDTIME; ORAL
     Route: 048
     Dates: start: 20051201
  2. TRIFEME [Concomitant]
  3. LYRICA [Concomitant]
  4. NEURONTIN [Concomitant]
  5. DITROPAN [Concomitant]
  6. PANADEINE [Concomitant]
  7. VESICARE [Concomitant]
  8. COLOXYL WITH SENNA [Concomitant]
  9. AVANZA [Concomitant]

REACTIONS (8)
  - BLADDER DISORDER [None]
  - DRY MOUTH [None]
  - DYSURIA [None]
  - GINGIVITIS [None]
  - ORAL CANDIDIASIS [None]
  - SENSITIVITY OF TEETH [None]
  - SLEEP DISORDER [None]
  - URINARY RETENTION [None]
